FAERS Safety Report 8000540-2 (Version None)
Quarter: 2011Q4

REPORT INFORMATION
  Report Type: 
  Country: None (occurrence: None)
  Receive Date: 20111222
  Receipt Date: 20111211
  Transmission Date: 20120403
  Serious: Yes (Other)
  Sender: FDA-Public Use
  Company Number: DE-UCBSA-047498

PATIENT
  Sex: Female

DRUGS (20)
  1. KEPPRA [Suspect]
  2. CHLORPROTIXEN [Suspect]
     Dosage: TOTAL AMOUNT : 50 MG, 1 TABLET
     Dates: start: 20111211, end: 20111211
  3. FUROSEMIDE [Suspect]
     Dosage: TOTAL AMOUNT : 40 MG, 1 TABLET
     Dates: start: 20111211, end: 20111211
  4. KATALODON [Suspect]
     Dosage: 3 TABLET
     Dates: start: 20111211, end: 20111211
  5. PAROXETINE HCL [Suspect]
     Dosage: TOTAL AMOUNT : 20 MG, 1 TABLET
     Dates: start: 20111211, end: 20111211
  6. THIORIDAZIN [Suspect]
     Dosage: TOTAL AMOUNT : 75 MG, 3 TABLET
     Dates: start: 20111211, end: 20111211
  7. RAMIPRIL [Suspect]
  8. METOPROLOL TARTRATE [Suspect]
  9. LERCANIDIPINE [Suspect]
  10. METOPROLOL TARTRATE [Suspect]
     Dosage: TOTAL AMOUNT: 150 MG, 1.5 TABLET
     Dates: start: 20111211, end: 20111211
  11. AKINETON [Suspect]
  12. RAMIPRIL [Suspect]
     Dosage: TOTAL AMOUNT : 10 MG, 1 TABLET
     Dates: start: 20111211, end: 20111211
  13. LERCANIDIPINE [Suspect]
     Dosage: TOTAL AMOUNT : 20 MG, 1 TABLET
     Dates: start: 20111211, end: 20111211
  14. AKINETON [Suspect]
     Dosage: 1 TABLET
     Dates: start: 20111211, end: 20111211
  15. KEPPRA [Suspect]
     Dosage: TOTAL AMOUNT : 3000 MG
     Dates: start: 20111211, end: 20111211
  16. CHLORPROTIXEN [Suspect]
  17. KATALODON [Suspect]
  18. PAROXETINE HCL [Suspect]
  19. THIORIDAZIN [Suspect]
  20. FUROSEMIDE [Suspect]

REACTIONS (2)
  - HYPOTENSION [None]
  - INCORRECT DOSE ADMINISTERED [None]
